FAERS Safety Report 6266291-X (Version None)
Quarter: 2009Q3

REPORT INFORMATION
  Report Type: 
  Country: None (occurrence: None)
  Receive Date: 20090713
  Receipt Date: 20090703
  Transmission Date: 20100115
  Serious: Yes (Hospitalization)
  Sender: FDA-Public Use
  Company Number: PHHY2009GR25924

PATIENT
  Age: 75 Year
  Sex: Male

DRUGS (3)
  1. MYFORTIC [Suspect]
     Dosage: 1440 MG, QD
     Route: 048
  2. ANTIBIOTICS [Concomitant]
  3. ANTIHISTAMINES [Concomitant]

REACTIONS (6)
  - C-REACTIVE PROTEIN INCREASED [None]
  - HAEMATOCRIT DECREASED [None]
  - PRURITUS [None]
  - PYREXIA [None]
  - RED BLOOD CELL SEDIMENTATION RATE INCREASED [None]
  - VOMITING [None]
